FAERS Safety Report 6785855-8 (Version None)
Quarter: 2010Q2

REPORT INFORMATION
  Report Type: 
  Country: None (occurrence: None)
  Receive Date: 20100623
  Receipt Date: 20100614
  Transmission Date: 20101027
  Serious: Yes (Other)
  Sender: FDA-Public Use
  Company Number: US-PFIZER INC-2010075008

PATIENT
  Sex: Female
  Weight: 58.957 kg

DRUGS (2)
  1. LYRICA [Suspect]
     Indication: CONVULSION PROPHYLAXIS
     Dosage: UNK
     Route: 048
     Dates: start: 20100501, end: 20100601
  2. DILANTIN [Suspect]
     Indication: CONVULSION
     Dosage: UNK
     Dates: end: 20100501

REACTIONS (3)
  - LOCAL SWELLING [None]
  - PARAESTHESIA [None]
  - SWOLLEN TONGUE [None]
